FAERS Safety Report 9323510 (Version 1)
Quarter: 2013Q2

REPORT INFORMATION
  Report Type: Spontaneous
  Country: US (occurrence: US)
  Receive Date: 20130603
  Receipt Date: 20130603
  Transmission Date: 20140414
  Serious: Yes (Hospitalization)
  Sender: FDA-Public Use
  Company Number: US-JNJFOC-20130513388

PATIENT
  Age: 26 Year
  Sex: Male

DRUGS (20)
  1. INVEGA [Concomitant]
     Indication: BIPOLAR DISORDER
     Route: 048
     Dates: start: 201304, end: 20130405
  2. INVEGA [Concomitant]
     Indication: SCHIZOAFFECTIVE DISORDER
     Route: 048
     Dates: start: 201304, end: 20130405
  3. INVEGA [Concomitant]
     Indication: HALLUCINATION
     Route: 048
     Dates: start: 201304, end: 20130405
  4. INVEGA [Concomitant]
     Indication: DELUSION
     Route: 048
     Dates: start: 201304, end: 20130405
  5. INVEGA SUSTENNA [Suspect]
     Indication: BIPOLAR DISORDER
     Route: 030
     Dates: start: 20130430, end: 20130430
  6. INVEGA SUSTENNA [Suspect]
     Indication: BIPOLAR DISORDER
     Route: 030
     Dates: start: 20130410, end: 20130410
  7. INVEGA SUSTENNA [Suspect]
     Indication: BIPOLAR DISORDER
     Route: 030
     Dates: start: 20130405, end: 20130405
  8. INVEGA SUSTENNA [Suspect]
     Indication: SCHIZOAFFECTIVE DISORDER
     Route: 030
     Dates: start: 20130410, end: 20130410
  9. INVEGA SUSTENNA [Suspect]
     Indication: SCHIZOAFFECTIVE DISORDER
     Route: 030
     Dates: start: 20130405, end: 20130405
  10. INVEGA SUSTENNA [Suspect]
     Indication: SCHIZOAFFECTIVE DISORDER
     Route: 030
     Dates: start: 20130430, end: 20130430
  11. INVEGA SUSTENNA [Suspect]
     Indication: HALLUCINATION
     Route: 030
     Dates: start: 20130410, end: 20130410
  12. INVEGA SUSTENNA [Suspect]
     Indication: HALLUCINATION
     Route: 030
     Dates: start: 20130430, end: 20130430
  13. INVEGA SUSTENNA [Suspect]
     Indication: HALLUCINATION
     Route: 030
     Dates: start: 20130405, end: 20130405
  14. INVEGA SUSTENNA [Suspect]
     Indication: DELUSION
     Route: 030
     Dates: start: 20130430, end: 20130430
  15. INVEGA SUSTENNA [Suspect]
     Indication: DELUSION
     Route: 030
     Dates: start: 20130405, end: 20130405
  16. INVEGA SUSTENNA [Suspect]
     Indication: DELUSION
     Route: 030
     Dates: start: 20130410, end: 20130410
  17. LAMICTAL [Suspect]
     Indication: DEPRESSION
     Route: 048
     Dates: start: 2013, end: 2013
  18. LAMICTAL [Suspect]
     Indication: DEPRESSION
     Route: 048
     Dates: start: 2013
  19. SEROQUEL [Suspect]
     Indication: DEPRESSION
     Route: 048
     Dates: start: 2013, end: 20130517
  20. MODAFINIL [Suspect]
     Indication: PRODUCT USED FOR UNKNOWN INDICATION
     Route: 065
     Dates: start: 2013, end: 20130517

REACTIONS (4)
  - Hypomania [Not Recovered/Not Resolved]
  - Depression [Not Recovered/Not Resolved]
  - Inappropriate schedule of drug administration [Unknown]
  - Off label use [Unknown]
